FAERS Safety Report 5320431-5 (Version None)
Quarter: 2007Q1

REPORT INFORMATION
  Report Type: 
  Country: None (occurrence: None)
  Receive Date: 20070220
  Receipt Date: 20061208
  Transmission Date: 20070707
  Serious: No
  Sender: FDA-Public Use
  Company Number: WAES0612USA01365

PATIENT
  Age: 69 Year
  Sex: Male

DRUGS (6)
  1. JANUVIA [Suspect]
     Indication: BLOOD GLUCOSE
     Dosage: 100 MG DAILY PO
     Route: 048
     Dates: start: 20061114
  2. AMARYL [Concomitant]
  3. BENICAR [Concomitant]
  4. LIPITOR [Concomitant]
  5. NEXIUM [Concomitant]
  6. METFORMIN HCL [Concomitant]

REACTIONS (5)
  - BLOOD CREATININE INCREASED [None]
  - BLOOD URINE PRESENT [None]
  - DIARRHOEA [None]
  - GLOMERULAR FILTRATION RATE DECREASED [None]
  - NAUSEA [None]
